FAERS Safety Report 7420437-6 (Version None)
Quarter: 2011Q2

REPORT INFORMATION
  Report Type: 
  Country: None (occurrence: None)
  Receive Date: 20110418
  Receipt Date: 20110413
  Transmission Date: 20111010
  Serious: Yes (Other)
  Sender: FDA-Public Use
  Company Number: US-PFIZER INC-2011081448

PATIENT

DRUGS (4)
  1. ZYPREXA [Suspect]
     Dosage: 20 MG, UNK
  2. COGENTIN [Concomitant]
     Dosage: 1 MG, 4X/DAY
  3. GEODON [Suspect]
     Dosage: 80 MG, 2X/DAY
  4. GEODON [Suspect]
     Dosage: 60 MG, 2X/DAY

REACTIONS (2)
  - EXTRAPYRAMIDAL DISORDER [None]
  - DYSTONIA [None]
